FAERS Safety Report 7494555-0 (Version None)
Quarter: 2011Q2

REPORT INFORMATION
  Report Type: 
  Country: None (occurrence: None)
  Receive Date: 20110520
  Receipt Date: 20110510
  Transmission Date: 20111010
  Serious: Yes (Other)
  Sender: FDA-Public Use
  Company Number: PHHY2010NZ14160

PATIENT
  Sex: Female
  Weight: 62 kg

DRUGS (11)
  1. SIMVASTATIN [Concomitant]
     Dosage: 20 MG/DAY
  2. OMEPRAZOLE [Concomitant]
     Dosage: 20 MG, PRN
  3. ETIDRONATE DISODIUM [Concomitant]
     Dosage: 400 MG DAILY FOR 2 WEEKS OUT OF EVERY 3 MONTHS
  4. COLECALCIFEROL [Concomitant]
     Dosage: 1.25 MG, QMO
  5. FOLIC ACID [Concomitant]
     Dosage: 5 MG, DAILY
  6. HYDROXYUREA [Concomitant]
     Dosage: 0.5 G SIX TIMES A WEEK
  7. NORFLOXACIN [Concomitant]
     Indication: URINARY TRACT INFECTION
  8. CYCLIZINE [Concomitant]
     Dosage: 50 MG, PRN
  9. TASIGNA [Suspect]
     Indication: CHRONIC MYELOID LEUKAEMIA
     Dosage: 400 MG, BID
     Route: 048
     Dates: start: 20100227, end: 20100304
  10. HYDROXYUREA [Concomitant]
     Dosage: 1 G, QW
  11. CALCIUM CARBONATE [Concomitant]
     Dosage: 125 MG/DAY

REACTIONS (14)
  - PANCREATITIS [None]
  - NAUSEA [None]
  - MUSCULOSKELETAL PAIN [None]
  - BLOOD AMYLASE INCREASED [None]
  - C-REACTIVE PROTEIN INCREASED [None]
  - ARTHRALGIA [None]
  - ABDOMINAL PAIN [None]
  - DIARRHOEA [None]
  - FATIGUE [None]
  - ABDOMINAL TENDERNESS [None]
  - ABDOMINAL DISTENSION [None]
  - INSOMNIA [None]
  - ESCHERICHIA URINARY TRACT INFECTION [None]
  - FLATULENCE [None]
